FAERS Safety Report 24409793 (Version 1)
Quarter: 2024Q4

REPORT INFORMATION
  Report Type: Spontaneous
  Country: US (occurrence: US)
  Receive Date: 20241008
  Receipt Date: 20241008
  Transmission Date: 20250115
  Serious: Yes (Hospitalization, Other)
  Sender: AZURITY PHARMACEUTICALS
  Company Number: US-AZURITY PHARMACEUTICALS, INC.-AZR202409-000744

PATIENT
  Age: 37 Year
  Sex: Female

DRUGS (5)
  1. METHYLPREDNISOLONE ACETATE [Suspect]
     Active Substance: METHYLPREDNISOLONE ACETATE
     Indication: Transplant rejection
     Dosage: UNK
     Route: 065
  2. METHYLPREDNISOLONE ACETATE [Suspect]
     Active Substance: METHYLPREDNISOLONE ACETATE
     Dosage: 1 MILLIGRAM/KILOGRAM, UNKNOWN
     Route: 042
  3. MYCOPHENOLIC ACID [Suspect]
     Active Substance: MYCOPHENOLIC ACID
     Indication: Complications of transplanted lung
     Dosage: UNK
     Route: 065
  4. CYCLOSPORINE [Suspect]
     Active Substance: CYCLOSPORINE
     Indication: Complications of transplanted lung
     Dosage: UNK
     Route: 065
  5. PREDNISONE [Suspect]
     Active Substance: PREDNISONE
     Indication: Complications of transplanted lung
     Dosage: UNK
     Route: 065

REACTIONS (5)
  - Renal tubular necrosis [Unknown]
  - Organising pneumonia [Unknown]
  - Acute respiratory failure [Recovering/Resolving]
  - Pneumonia pseudomonal [Unknown]
  - Influenza [Unknown]
